FAERS Safety Report 7570378-9 (Version None)
Quarter: 2011Q2

REPORT INFORMATION
  Report Type: 
  Country: None (occurrence: None)
  Receive Date: 20110624
  Receipt Date: 20110620
  Transmission Date: 20111010
  Serious: Yes (Death)
  Sender: FDA-Public Use
  Company Number: JP-PFIZER INC-2011135871

PATIENT
  Age: 74 Year
  Sex: Male
  Weight: 64.3 kg

DRUGS (6)
  1. GASMOTIN [Concomitant]
     Indication: GASTRITIS
     Dosage: 5 MG, 3X/DAY
     Route: 048
     Dates: end: 20110612
  2. EPLERENONE [Suspect]
     Indication: HYPERTENSION
     Dosage: 50 MG, 1X/DAY
     Route: 048
     Dates: start: 20110605
  3. RABEPRAZOLE SODIUM [Concomitant]
     Indication: REFLUX OESOPHAGITIS
     Dosage: 10 MG, 1X/DAY
     Route: 048
     Dates: end: 20110612
  4. SUNRYTHM [Concomitant]
     Indication: ARRHYTHMIA PROPHYLAXIS
     Dosage: 50 MG, 3X/DAY
     Route: 048
     Dates: end: 20110612
  5. VERAPAMIL HCL [Concomitant]
     Indication: HYPERTENSION
     Dosage: 40 MG, 1X/DAY
     Route: 048
     Dates: end: 20110612
  6. DIOVAN [Concomitant]
     Indication: HYPERTENSION
     Dosage: 40 MG, 1X/DAY
     Route: 048
     Dates: end: 20110612

REACTIONS (5)
  - DEATH [None]
  - CARDIO-RESPIRATORY ARREST [None]
  - SUDDEN DEATH [None]
  - ACUTE CORONARY SYNDROME [None]
  - CEREBROVASCULAR ACCIDENT [None]
